FAERS Safety Report 6946178-7 (Version None)
Quarter: 2010Q3

REPORT INFORMATION
  Report Type: 
  Country: None (occurrence: None)
  Receive Date: 20100827
  Receipt Date: 20100823
  Transmission Date: 20110219
  Serious: Yes (Life-Threatening, Hospitalization, Disabling, Other)
  Sender: FDA-Public Use
  Company Number: PHHY2010US54059

PATIENT
  Sex: Female
  Weight: 56.236 kg

DRUGS (20)
  1. RECLAST [Suspect]
     Indication: OSTEOPOROSIS
     Dosage: 5 MG/100 ML ONCE
     Route: 042
     Dates: start: 20100726
  2. LASIX [Suspect]
     Indication: CARDIAC FAILURE CONGESTIVE
     Dosage: 40 MG, QD
     Route: 048
     Dates: start: 20100405, end: 20100804
  3. LISINOPRIL [Suspect]
     Indication: HYPERTENSION
     Dosage: 10 MG, QD
     Route: 048
     Dates: start: 20100405, end: 20100804
  4. METFORMIN [Suspect]
     Indication: DIABETES MELLITUS
     Dosage: 1000 MG, BID
     Route: 048
     Dates: start: 20100405, end: 20100804
  5. FOSAMAX [Concomitant]
  6. CHOLESTEROL [Concomitant]
  7. SYNTHROID [Concomitant]
     Dosage: 125 MG, QD
  8. SPIRIVA [Concomitant]
     Dosage: 18 MG, QD
  9. ATENOLOL [Concomitant]
  10. OSCAL [Concomitant]
  11. SIMVASTATIN [Concomitant]
     Dosage: 40 MG, QD
  12. COREG [Concomitant]
  13. ASPIRIN [Concomitant]
  14. ASCORBIC ACID [Concomitant]
  15. ADVAIR DISKUS 100/50 [Concomitant]
     Dosage: 250/50 BID
  16. PRANDIN [Concomitant]
     Dosage: 1 MG, TID
  17. OXYGEN [Concomitant]
  18. SODIUM BICARBONATE [Concomitant]
  19. KAYEXALATE [Concomitant]
  20. INSULIN [Concomitant]

REACTIONS (35)
  - ANAEMIA [None]
  - ASTHENIA [None]
  - BLADDER CATHETERISATION [None]
  - BLOOD BICARBONATE DECREASED [None]
  - BLOOD CREATININE INCREASED [None]
  - BLOOD PRESSURE DIASTOLIC DECREASED [None]
  - BLOOD PRESSURE SYSTOLIC INCREASED [None]
  - BLOOD UREA INCREASED [None]
  - BUNDLE BRANCH BLOCK LEFT [None]
  - CARDIOACTIVE DRUG LEVEL INCREASED [None]
  - DECREASED APPETITE [None]
  - DEHYDRATION [None]
  - DYSPNOEA [None]
  - ELECTROCARDIOGRAM QRS COMPLEX PROLONGED [None]
  - ELECTROCARDIOGRAM ST-T CHANGE [None]
  - FAECES DISCOLOURED [None]
  - FATIGUE [None]
  - FEELING COLD [None]
  - GASTROINTESTINAL HAEMORRHAGE [None]
  - GLOMERULAR FILTRATION RATE DECREASED [None]
  - HYPERKALAEMIA [None]
  - HYPOGLYCAEMIA [None]
  - HYPOVOLAEMIA [None]
  - LACTIC ACIDOSIS [None]
  - LEUKOCYTOSIS [None]
  - MALAISE [None]
  - MEMORY IMPAIRMENT [None]
  - MENTAL STATUS CHANGES [None]
  - METABOLIC ACIDOSIS [None]
  - OCCULT BLOOD POSITIVE [None]
  - RENAL CYST HAEMORRHAGE [None]
  - RENAL FAILURE ACUTE [None]
  - RENAL IMPAIRMENT [None]
  - RENAL TUBULAR NECROSIS [None]
  - URINARY CASTS [None]
